FAERS Safety Report 12951759 (Version 5)
Quarter: 2017Q3

REPORT INFORMATION
  Report Type: Report from Study
  Country: US (occurrence: US)
  Receive Date: 20161117
  Receipt Date: 20170817
  Transmission Date: 20171127
  Serious: Yes (Death, Life-Threatening, Hospitalization, Other)
  Sender: FDA-Public Use
  Company Number: US-ALEXION PHARMACEUTICALS INC.-A201608778

PATIENT
  Age: 55 Year
  Sex: Female

DRUGS (1)
  1. SOLIRIS [Suspect]
     Active Substance: ECULIZUMAB
     Indication: PAROXYSMAL NOCTURNAL HAEMOGLOBINURIA
     Dosage: 900 MG, Q2W
     Route: 042

REACTIONS (11)
  - Hypotension [Unknown]
  - Electrocardiogram abnormal [Unknown]
  - Blood bilirubin increased [Fatal]
  - Confusional state [Unknown]
  - Aortic valve incompetence [Unknown]
  - Back pain [Unknown]
  - Breast cancer [Not Recovered/Not Resolved]
  - Jaundice [Unknown]
  - Metastases to liver [Unknown]
  - Cellulitis [Unknown]
  - Dizziness [Unknown]

NARRATIVE: CASE EVENT DATE: 20161109
